FAERS Safety Report 9902424 (Version 3)
Quarter: 2014Q2

REPORT INFORMATION
  Report Type: Report from Study
  Country: CA (occurrence: CA)
  Receive Date: 20140217
  Receipt Date: 20140520
  Transmission Date: 20141212
  Serious: Yes (Death, Life-Threatening, Hospitalization)
  Sender: FDA-Public Use
  Company Number: CA-JNJFOC-20140204610

PATIENT
  Age: 78 Year
  Sex: Female
  Weight: 103 kg

DRUGS (1)
  1. STELARA [Suspect]
     Indication: PSORIASIS
     Route: 058
     Dates: start: 20130919, end: 20140109

REACTIONS (4)
  - Central nervous system lymphoma [Not Recovered/Not Resolved]
  - Death [Fatal]
  - Urinary tract infection [Recovered/Resolved]
  - Confusional state [Not Recovered/Not Resolved]
